FAERS Safety Report 13738445 (Version 1)
Quarter: 2017Q3

REPORT INFORMATION
  Report Type: Report from Study
  Country: US (occurrence: US)
  Receive Date: 20170710
  Receipt Date: 20170710
  Transmission Date: 20171127
  Serious: No
  Sender: FDA-Public Use
  Company Number: US-SAOL THERAPEUTICS-2016SAO01100

PATIENT
  Age: 68 Year
  Sex: Male

DRUGS (16)
  1. COMPOUNDED BACLOFEN [Suspect]
     Active Substance: BACLOFEN
     Dosage: 324.91 ?G, \DAY
     Route: 037
     Dates: start: 20150122, end: 20150219
  2. CLONIDINE. [Suspect]
     Active Substance: CLONIDINE
     Dosage: 64.98 ?G, \DAY
     Route: 037
     Dates: start: 20150122, end: 20150219
  3. BUPIVICAINE [Suspect]
     Active Substance: BUPIVACAINE
     Dosage: 12.996 MG, \DAY
     Route: 037
     Dates: start: 20150122, end: 20150219
  4. CLONIDINE. [Suspect]
     Active Substance: CLONIDINE
     Dosage: 75.07 ?G, \DAY
     Route: 037
     Dates: start: 20150219
  5. DILAUDID [Suspect]
     Active Substance: HYDROMORPHONE HYDROCHLORIDE
     Dosage: 0.777 MG, \DAY
     Route: 037
     Dates: start: 20150122, end: 20150219
  6. COMPOUNDED BACLOFEN [Suspect]
     Active Substance: BACLOFEN
     Dosage: 388.57 ?G, \DAY
     Route: 037
     Dates: start: 20150122, end: 20150219
  7. COMPOUNDED BACLOFEN [Suspect]
     Active Substance: BACLOFEN
     Dosage: 442.52 ?G, \DAY
     Route: 037
     Dates: start: 20150219
  8. BUPIVICAINE [Suspect]
     Active Substance: BUPIVACAINE
     Dosage: 15.543 MG, \DAY
     Route: 037
     Dates: start: 20150122, end: 20150219
  9. CLONIDINE. [Suspect]
     Active Substance: CLONIDINE
     Dosage: 88.50 ?G, \DAY
     Route: 037
     Dates: start: 20150219
  10. DILAUDID [Suspect]
     Active Substance: HYDROMORPHONE HYDROCHLORIDE
     Dosage: 0.649 MG, \DAY
     Route: 037
     Dates: start: 20150122, end: 20150219
  11. COMPOUNDED BACLOFEN [Suspect]
     Active Substance: BACLOFEN
     Dosage: 375.36 ?G, \DAY
     Route: 037
     Dates: start: 20150219
  12. BUPIVICAINE [Suspect]
     Active Substance: BUPIVACAINE
     Dosage: 15.014 MG, \DAY
     Route: 037
     Dates: start: 20150219
  13. DILAUDID [Suspect]
     Active Substance: HYDROMORPHONE HYDROCHLORIDE
     Dosage: 0.750 MG, \DAY
     Route: 037
     Dates: start: 20150219
  14. DILAUDID [Suspect]
     Active Substance: HYDROMORPHONE HYDROCHLORIDE
     Dosage: 0.885 MG, \DAY
     Route: 037
     Dates: start: 20150219
  15. BUPIVICAINE [Suspect]
     Active Substance: BUPIVACAINE
     Dosage: 17.701 MG, \DAY
     Route: 037
     Dates: start: 20150219
  16. CLONIDINE. [Suspect]
     Active Substance: CLONIDINE
     Dosage: 77.71 ?G, \DAY
     Route: 037
     Dates: start: 20150122, end: 20150219

REACTIONS (2)
  - Sedation [Recovered/Resolved]
  - Overdose [Recovered/Resolved]

NARRATIVE: CASE EVENT DATE: 20150617
